FAERS Safety Report 9241222 (Version 1)
Quarter: 2013Q1

REPORT INFORMATION
  Report Type: Spontaneous
  Country: US (occurrence: None)
  Receive Date: 20121120
  Receipt Date: 20121120
  Transmission Date: 20140127
  Serious: No
  Sender: FDA-Public Use
  Company Number: 1000038181

PATIENT
  Age: 82 Year
  Sex: Female

DRUGS (11)
  1. VIIBRYD [Suspect]
     Indication: DEPRESSION
     Dosage: 1 IN 1 D
     Route: 048
     Dates: start: 20120814, end: 20120820
  2. DIAZEPAM (DIAZEPAM) [Suspect]
     Indication: ANXIETY
     Dosage: 1/2 TABLET
  3. MAPROTILINE [Concomitant]
  4. BENICAR (OLMESARTAN MEDOXOMIL) [Concomitant]
  5. PREMARIN (ESTROGENS CONJUGATED) [Concomitant]
  6. RED YEAST RICE (MONASCUS PURPUREUS) [Concomitant]
  7. VITAMIN D3 (COLECALCIFEROL) [Concomitant]
  8. MAGNESIUM [Concomitant]
  9. VITAMIN B6 (PYRIDOXINE HYDROCHLORIDE) [Concomitant]
  10. VITAMIN B2 (RIBOFLAVIN) [Concomitant]
  11. ACIPHEX (RABEPRAZOLE SODIUM) [Concomitant]

REACTIONS (2)
  - Myalgia [None]
  - Anxiety [None]
